FAERS Safety Report 23419432 (Version 1)
Quarter: 2024Q1

REPORT INFORMATION
  Report Type: Report from Study
  Country: RO (occurrence: RO)
  Receive Date: 20240118
  Receipt Date: 20240118
  Transmission Date: 20240410
  Serious: Yes (Death, Other)
  Sender: FDA-Public Use
  Company Number: RO-ABBVIE-5593260

PATIENT
  Age: 75 Year
  Sex: Male

DRUGS (2)
  1. CARBIDOPA\LEVODOPA [Suspect]
     Active Substance: CARBIDOPA\LEVODOPA
     Indication: Parkinson^s disease
     Dosage: DM=3.00 DC=3.20 ED=1.30 NRED=0; DMN=0.00 DCN=1.50 EDN=1.50 NREDN=0
     Route: 050
     Dates: start: 20120718, end: 20240114
  2. CARBIDOPA\LEVODOPA [Suspect]
     Active Substance: CARBIDOPA\LEVODOPA

REACTIONS (6)
  - Cardio-respiratory arrest [Fatal]
  - Dysarthria [Fatal]
  - Somnolence [Fatal]
  - General physical health deterioration [Fatal]
  - Mobility decreased [Fatal]
  - Decreased appetite [Fatal]

NARRATIVE: CASE EVENT DATE: 20240114
